FAERS Safety Report 7371056-1 (Version None)
Quarter: 2011Q1

REPORT INFORMATION
  Report Type: 
  Country: None (occurrence: None)
  Receive Date: 20110318
  Receipt Date: 20110318
  Transmission Date: 20110831
  Serious: Yes (Hospitalization)
  Sender: FDA-Public Use
  Company Number: None

PATIENT
  Age: 73 Year
  Sex: Male
  Weight: 78.69 kg

DRUGS (2)
  1. LANTUS [Suspect]
     Indication: DIABETES MELLITUS INADEQUATE CONTROL
     Dosage: 12 UNITS DAILY SQ
     Route: 058
     Dates: start: 20090101, end: 20110227
  2. LANTUS [Suspect]
     Indication: DIABETES MELLITUS INADEQUATE CONTROL
     Dosage: 12 UNITS DAILY SQ
     Route: 058

REACTIONS (8)
  - STAPHYLOCOCCUS TEST POSITIVE [None]
  - INFLUENZA LIKE ILLNESS [None]
  - MALAISE [None]
  - NAUSEA [None]
  - DRUG HYPERSENSITIVITY [None]
  - DIABETIC KETOACIDOSIS [None]
  - PRURITUS [None]
  - CHOLELITHIASIS [None]
